FAERS Safety Report 5163377-8 (Version None)
Quarter: 2006Q4

REPORT INFORMATION
  Report Type: 
  Country: None (occurrence: None)
  Receive Date: 20061124
  Receipt Date: 20061110
  Transmission Date: 20070319
  Serious: Yes (Other)
  Sender: FDA-Public Use
  Company Number: 2006139594

PATIENT
  Age: 51 Year
  Sex: Male
  Weight: 63.5036 kg

DRUGS (6)
  1. LYRICA [Suspect]
     Indication: BREAKTHROUGH PAIN
     Dosage: 25 MG (25 MG, 1 IN 1 D)
     Dates: start: 20061108, end: 20061109
  2. DETROL LA [Suspect]
     Indication: URINARY INCONTINENCE
  3. METHADONE HCL [Concomitant]
  4. DIAZEPAM [Concomitant]
  5. DICYCLOMINE [Concomitant]
  6. ASPIRIN [Concomitant]

REACTIONS (8)
  - BEDRIDDEN [None]
  - BLOOD PRESSURE INCREASED [None]
  - CHEST DISCOMFORT [None]
  - DYSPNOEA [None]
  - HANGOVER [None]
  - INCONTINENCE [None]
  - MALAISE [None]
  - NERVOUS SYSTEM DISORDER [None]
